FAERS Safety Report 4773255-1 (Version None)
Quarter: 2005Q3

REPORT INFORMATION
  Report Type: 
  Country: None (occurrence: None)
  Receive Date: 20050916
  Receipt Date: 20050908
  Transmission Date: 20060218
  Serious: Yes (Disabling, Other)
  Sender: FDA-Public Use
  Company Number: 200510990BWH

PATIENT
  Age: 54 Year
  Sex: Female
  Weight: 69.8539 kg

DRUGS (2)
  1. CIPRO [Suspect]
     Indication: BETA HAEMOLYTIC STREPTOCOCCAL INFECTION
     Dosage: 250 MG, BID, ORAL
     Route: 048
     Dates: start: 20040601
  2. LEVOXYL [Concomitant]

REACTIONS (9)
  - ABASIA [None]
  - ARTHRALGIA [None]
  - ARTHROPATHY [None]
  - FALL [None]
  - GAIT DISTURBANCE [None]
  - IMPAIRED SELF-CARE [None]
  - INSOMNIA [None]
  - NEUROPATHY [None]
  - PAIN IN EXTREMITY [None]
